FAERS Safety Report 6833350-X (Version None)
Quarter: 2010Q3

REPORT INFORMATION
  Report Type: 
  Country: None (occurrence: None)
  Receive Date: 20100712
  Receipt Date: 20070322
  Transmission Date: 20110219
  Serious: No
  Sender: FDA-Public Use
  Company Number: US-PFIZER INC-2007025245

PATIENT
  Sex: Male
  Weight: 92.99 kg

DRUGS (4)
  1. CHANTIX [Suspect]
     Indication: SMOKING CESSATION THERAPY
     Dates: start: 20070101
  2. GARLIC [Suspect]
  3. SELENIUM [Concomitant]
  4. VITAMINS [Concomitant]

REACTIONS (13)
  - ABDOMINAL DISTENSION [None]
  - ABNORMAL DREAMS [None]
  - BLOOD PRESSURE INCREASED [None]
  - BURNOUT SYNDROME [None]
  - CONSTIPATION [None]
  - FLATULENCE [None]
  - HEADACHE [None]
  - INSOMNIA [None]
  - OVERWORK [None]
  - RESTLESSNESS [None]
  - SINUS DISORDER [None]
  - STRESS [None]
  - TERMINAL DRIBBLING [None]
